FAERS Safety Report 9882422 (Version 1)
Quarter: 2014Q1

REPORT INFORMATION
  Report Type: Spontaneous
  Country: JP (occurrence: JP)
  Receive Date: 20140207
  Receipt Date: 20140207
  Transmission Date: 20141002
  Serious: Yes (Other)
  Sender: FDA-Public Use
  Company Number: JP-BAXTER-2014BAX005551

PATIENT
  Age: 3 Month
  Sex: Male

DRUGS (2)
  1. GAMMAGARD FOR INJECTION 2.5G [Suspect]
     Indication: KAWASAKI^S DISEASE
     Route: 042
  2. ASPIRIN [Concomitant]
     Indication: KAWASAKI^S DISEASE

REACTIONS (3)
  - Acute myocardial infarction [Recovered/Resolved]
  - Thrombosis [Recovered/Resolved]
  - Aneurysm [Recovered/Resolved]
